FAERS Safety Report 7675202-1 (Version None)
Quarter: 2011Q3

REPORT INFORMATION
  Report Type: 
  Country: None (occurrence: None)
  Receive Date: 20110810
  Receipt Date: 20110810
  Transmission Date: 20111222
  Serious: Yes (Death, Life-Threatening, Hospitalization, Disabling, Congenital Anomaly, Other)
  Sender: FDA-Public Use
  Company Number: None

PATIENT
  Age: 32 Year
  Sex: Female
  Weight: 71.667 kg

DRUGS (1)
  1. CIPROFLOXACIN [Suspect]
     Indication: ENTERITIS INFECTIOUS
     Dosage: 250MG
     Route: 048
     Dates: start: 20110722, end: 20110724

REACTIONS (3)
  - INSOMNIA [None]
  - ANXIETY [None]
  - MUSCLE TWITCHING [None]
